FAERS Safety Report 25678981 (Version 1)
Quarter: 2025Q3

REPORT INFORMATION
  Report Type: Spontaneous
  Country: US (occurrence: US)
  Receive Date: 20250814
  Receipt Date: 20250814
  Transmission Date: 20251020
  Serious: No
  Sender: RECKITT BENCKISER
  Company Number: US-PROD-AS2-212756134-20-25-USA-RB-0001982

PATIENT
  Sex: Male

DRUGS (1)
  1. MUCINEX MAXIMUM STRENGTH [Suspect]
     Active Substance: GUAIFENESIN
     Indication: Secretion discharge
     Dosage: 2 TABLETS A DAY, BID
     Route: 048
     Dates: start: 20250203, end: 20250204

REACTIONS (1)
  - Drug ineffective [Not Recovered/Not Resolved]
